FAERS Safety Report 8118599-0 (Version None)
Quarter: 2012Q1

REPORT INFORMATION
  Report Type: 
  Country: None (occurrence: None)
  Receive Date: 20120202
  Receipt Date: 20120124
  Transmission Date: 20120608
  Serious: Yes (Disabling)
  Sender: FDA-Public Use
  Company Number: 2012SP004446

PATIENT
  Age: 45 Year
  Sex: Male

DRUGS (3)
  1. PEG-INTRON [Suspect]
     Indication: PRODUCT USED FOR UNKNOWN INDICATION
  2. VICTRELIS [Suspect]
     Indication: PRODUCT USED FOR UNKNOWN INDICATION
     Dosage: 800 MG; TID; PO
     Route: 048
     Dates: start: 20120111, end: 20120122
  3. RIBAVIRIN [Suspect]
     Indication: PRODUCT USED FOR UNKNOWN INDICATION

REACTIONS (8)
  - FEELING HOT [None]
  - SENSORY DISTURBANCE [None]
  - FATIGUE [None]
  - NAUSEA [None]
  - VOMITING [None]
  - FEELING COLD [None]
  - IMPAIRED WORK ABILITY [None]
  - ASTHENIA [None]
